FAERS Safety Report 26054583 (Version 1)
Quarter: 2025Q4

REPORT INFORMATION
  Report Type: Report from Study
  Country: US (occurrence: US)
  Receive Date: 20251117
  Receipt Date: 20251117
  Transmission Date: 20260117
  Serious: Yes (Death)
  Sender: OTSUKA
  Company Number: US-MMM-Otsuka-21HNCOY7

PATIENT
  Age: 69 Year
  Sex: Male

DRUGS (1)
  1. DEXTROMETHORPHAN HYDROBROMIDE\QUINIDINE SULFATE [Suspect]
     Active Substance: DEXTROMETHORPHAN HYDROBROMIDE\QUINIDINE SULFATE
     Indication: Affect lability
     Dosage: 1 DF (20/10 MG), BID (EVERY 12 HOURS)

REACTIONS (1)
  - Death [Fatal]

NARRATIVE: CASE EVENT DATE: 20251029
